FAERS Safety Report 19251340 (Version 2)
Quarter: 2021Q3

REPORT INFORMATION
  Report Type: Report from Study
  Country: US (occurrence: US)
  Receive Date: 20210513
  Receipt Date: 20210709
  Transmission Date: 20211014
  Serious: No
  Sender: FDA-Public Use
  Company Number: US-ACADIA PHARMACEUTICALS INC.-ACA-2021-PIM-001527

PATIENT
  Age: 52 Year
  Sex: Male

DRUGS (17)
  1. NUPLAZID [Suspect]
     Active Substance: PIMAVANSERIN TARTRATE
     Indication: BIPOLAR DISORDER
     Dosage: 34 MILLIGRAM, QD
     Route: 048
     Dates: start: 20210414, end: 202106
  2. ALEVE [Concomitant]
     Active Substance: NAPROXEN SODIUM
  3. ATORVASTATIN [Concomitant]
     Active Substance: ATORVASTATIN
  4. METFORMIN [Concomitant]
     Active Substance: METFORMIN HYDROCHLORIDE
  5. CENTRUM MEN [Concomitant]
     Active Substance: MINERALS\VITAMINS
  6. DULOXETINE. [Concomitant]
     Active Substance: DULOXETINE
  7. MICROLET [ETHINYLESTRADIOL;GESTODENE] [Concomitant]
  8. NUPLAZID [Suspect]
     Active Substance: PIMAVANSERIN TARTRATE
     Indication: PARKINSON^S DISEASE
  9. BACLOFEN. [Concomitant]
     Active Substance: BACLOFEN
  10. CONTOUR [ESOMEPRAZOLE MAGNESIUM] [Concomitant]
  11. FISH OIL [Concomitant]
     Active Substance: FISH OIL
  12. IBUPROFEN. [Concomitant]
     Active Substance: IBUPROFEN
  13. NUPLAZID [Suspect]
     Active Substance: PIMAVANSERIN TARTRATE
     Indication: SCHIZOPHRENIA
  14. AMOXICILLIN. [Concomitant]
     Active Substance: AMOXICILLIN
  15. DIVALPROEX [Concomitant]
     Active Substance: DIVALPROEX SODIUM
  16. QUETIAPINE. [Concomitant]
     Active Substance: QUETIAPINE
  17. APAP/CODEINE [CODEINE PHOSPHATE;PARACETAMOL] [Concomitant]

REACTIONS (2)
  - Drug ineffective [Not Recovered/Not Resolved]
  - Off label use [Unknown]

NARRATIVE: CASE EVENT DATE: 202104
